FAERS Safety Report 5484081-2 (Version None)
Quarter: 2007Q4

REPORT INFORMATION
  Report Type: 
  Country: None (occurrence: None)
  Receive Date: 20071009
  Receipt Date: 20071009
  Transmission Date: 20080405
  Serious: Yes (Hospitalization, Other)
  Sender: FDA-Public Use
  Company Number: None

PATIENT
  Sex: Female
  Weight: 70.3075 kg

DRUGS (5)
  1. BONIVA [Suspect]
     Indication: BONE DENSITY DECREASED
     Dosage: 150 MG (1) ONCE MONTHLY
     Dates: start: 20070501, end: 20070801
  2. PREMARIN [Concomitant]
  3. NEXIUM [Concomitant]
  4. MULTI-VITAMIN [Concomitant]
  5. XANAX [Concomitant]

REACTIONS (3)
  - CHEST PAIN [None]
  - CRYING [None]
  - DRUG INEFFECTIVE [None]
